FAERS Safety Report 8972589 (Version 1)
Quarter: 2012Q4

REPORT INFORMATION
  Report Type: Report from Study
  Country: US (occurrence: US)
  Receive Date: 20121218
  Receipt Date: 20121218
  Transmission Date: 20130627
  Serious: Yes (Hospitalization, Other)
  Sender: FDA-Public Use
  Company Number: US-ROCHE-1160261

PATIENT
  Age: 74 Year
  Sex: Male
  Weight: 94.89 kg

DRUGS (3)
  1. BEVACIZUMAB [Suspect]
     Indication: NON-SMALL CELL LUNG CANCER
     Route: 042
     Dates: start: 201112, end: 201210
  2. BEVACIZUMAB [Suspect]
     Route: 042
     Dates: start: 20120229, end: 20120927
  3. ALIMTA [Concomitant]
     Indication: NON-SMALL CELL LUNG CANCER
     Route: 042
     Dates: start: 20120229, end: 20120927

REACTIONS (2)
  - Localised infection [Recovering/Resolving]
  - Wound [Recovered/Resolved]
